FAERS Safety Report 4905556-8 (Version None)
Quarter: 2006Q1

REPORT INFORMATION
  Report Type: 
  Country: None (occurrence: None)
  Receive Date: 20060113
  Receipt Date: 20050509
  Transmission Date: 20060701
  Serious: Yes (Other)
  Sender: FDA-Public Use
  Company Number: HQWYE606610MAY05

PATIENT
  Age: 59 Year
  Sex: Female

DRUGS (4)
  1. PREMPRO [Suspect]
     Dosage: ORAL
     Route: 048
     Dates: start: 19970101
  2. PREMARIN [Suspect]
     Dosage: ORAL
     Route: 048
     Dates: start: 19920101
  3. PROVERA [Suspect]
     Dosage: SEE IMAGE
     Route: 048
     Dates: start: 19920101, end: 19970101
  4. PROVERA [Suspect]
     Dosage: SEE IMAGE
     Route: 048
     Dates: start: 19980101, end: 20041001

REACTIONS (1)
  - BREAST CANCER [None]
